FAERS Safety Report 5607650-5 (Version None)
Quarter: 2008Q1

REPORT INFORMATION
  Report Type: 
  Country: None (occurrence: None)
  Receive Date: 20080128
  Receipt Date: 20080128
  Transmission Date: 20080703
  Serious: No
  Sender: FDA-Public Use
  Company Number: None

PATIENT
  Age: 49 Year
  Sex: Female
  Weight: 77.1115 kg

DRUGS (2)
  1. GABAPENTIN [Suspect]
     Indication: HYPOAESTHESIA
     Dosage: 3 TIMES DAILY
     Dates: start: 20050117, end: 20050124
  2. GABAPENTIN [Suspect]
     Indication: NERVE COMPRESSION
     Dosage: 3 TIMES DAILY
     Dates: start: 20050117, end: 20050124

REACTIONS (3)
  - CONVULSION [None]
  - DIZZINESS [None]
  - FALL [None]
